FAERS Safety Report 10252037 (Version 1)
Quarter: 2014Q2

REPORT INFORMATION
  Report Type: Spontaneous
  Country: FR (occurrence: FR)
  Receive Date: 20140623
  Receipt Date: 20140623
  Transmission Date: 20141212
  Serious: Yes (Hospitalization, Other)
  Sender: FDA-Public Use
  Company Number: PHHY2014FR075451

PATIENT
  Age: 78 Year
  Sex: Male

DRUGS (11)
  1. ACLASTA [Suspect]
     Indication: OSTEOPOROTIC FRACTURE
     Dosage: UNK UKN, UNK
     Route: 042
     Dates: start: 2011
  2. ACLASTA [Suspect]
     Dosage: UNK UKN, UNK
     Route: 042
     Dates: start: 20130710
  3. LERCANIDIPINE [Concomitant]
     Dosage: 10 MG, QD (ONCE DAILY)
  4. KARDEGIC [Concomitant]
  5. AMIODARONE [Concomitant]
     Dosage: UNK UKN, QD (ONCE DAILY)
  6. TAHOR [Concomitant]
     Dosage: 20 MG, QD ONCE DAILY
  7. TAHOR [Concomitant]
     Dosage: 10 MG, QD
  8. SERESTA [Concomitant]
     Dosage: 0.5 MG, QD ONCE DAILY IN THE EVENING
  9. ATACAND [Concomitant]
     Dosage: 16 MG, QD ONCE DAILY
  10. REMINYL LP [Concomitant]
     Dosage: 16 MG, QD ONCE DAILY
  11. DIFFU K [Concomitant]
     Dosage: UNK UKN, THRICE DAILY

REACTIONS (3)
  - Drug eruption [Recovered/Resolved]
  - Dermatitis bullous [Recovered/Resolved]
  - Rash generalised [Recovered/Resolved]
